FAERS Safety Report 9696598 (Version 4)
Quarter: 2015Q3

REPORT INFORMATION
  Report Type: Spontaneous
  Country: US (occurrence: US)
  Receive Date: 20131119
  Receipt Date: 20150817
  Transmission Date: 20151125
  Serious: No
  Sender: FDA-Public Use
  Company Number: US-GILEAD-2013-0087006

PATIENT
  Age: 49 Year
  Sex: Male

DRUGS (3)
  1. LETAIRIS [Suspect]
     Active Substance: AMBRISENTAN
     Indication: PULMONARY HYPERTENSION
     Dosage: 10 MG, QD
     Route: 048
     Dates: start: 20091009
  2. TYVASO [Suspect]
     Active Substance: TREPROSTINIL
  3. COUMADIN [Concomitant]
     Active Substance: WARFARIN SODIUM

REACTIONS (4)
  - Dizziness [Unknown]
  - Palpitations [Recovered/Resolved]
  - Throat irritation [Recovered/Resolved]
  - Diarrhoea [Recovered/Resolved]
